FAERS Safety Report 8320470-6 (Version None)
Quarter: 2012Q2

REPORT INFORMATION
  Report Type: 
  Country: None (occurrence: None)
  Receive Date: 20120426
  Receipt Date: 20120426
  Transmission Date: 20120825
  Serious: Yes (Hospitalization)
  Sender: FDA-Public Use
  Company Number: None

PATIENT
  Sex: Female
  Weight: 62 kg

DRUGS (4)
  1. DOXORUBICIN HYDROCHLORIDE [Suspect]
     Dosage: 96 MG
  2. ETOPOSIDE [Suspect]
     Dosage: 480 MG
  3. CYCLOPHOSPHAMIDE [Suspect]
     Dosage: 1840 MG
  4. VINCRISTINE SULFATE [Suspect]
     Dosage: 2.72 MG

REACTIONS (1)
  - UPPER GASTROINTESTINAL HAEMORRHAGE [None]
